FAERS Safety Report 4803376-6 (Version None)
Quarter: 2005Q4

REPORT INFORMATION
  Report Type: 
  Country: None (occurrence: None)
  Receive Date: 20051019
  Receipt Date: 20051007
  Transmission Date: 20060501
  Serious: Yes (Hospitalization)
  Sender: FDA-Public Use
  Company Number: FR-JNJFOC-20051001593

PATIENT
  Age: 53 Year
  Sex: Female
  Weight: 50 kg

DRUGS (10)
  1. RISPERDAL [Suspect]
     Route: 048
     Dates: start: 20050314, end: 20050902
  2. LEPONEX [Suspect]
     Route: 048
  3. LEPONEX [Suspect]
     Route: 048
  4. LEPONEX [Suspect]
     Route: 048
  5. LEPONEX [Suspect]
     Route: 048
  6. LEPONEX [Suspect]
     Route: 048
  7. LEPONEX [Suspect]
     Route: 048
  8. LEPTICUR [Concomitant]
     Indication: DRUG USE FOR UNKNOWN INDICATION
  9. NOZINAN [Concomitant]
     Indication: DRUG USE FOR UNKNOWN INDICATION
  10. SERESTA [Concomitant]
     Indication: DRUG USE FOR UNKNOWN INDICATION

REACTIONS (2)
  - AGRANULOCYTOSIS [None]
  - PYREXIA [None]
